FAERS Safety Report 6892783-6 (Version None)
Quarter: 2010Q3

REPORT INFORMATION
  Report Type: 
  Country: None (occurrence: None)
  Receive Date: 20100731
  Receipt Date: 20081114
  Transmission Date: 20110219
  Serious: No
  Sender: FDA-Public Use
  Company Number: US-PFIZER INC-2008080492

PATIENT
  Sex: Male
  Weight: 79.545 kg

DRUGS (2)
  1. CAVERJECT [Suspect]
     Indication: ERECTILE DYSFUNCTION
     Dates: start: 20080801, end: 20080901
  2. HYTRIN [Concomitant]

REACTIONS (1)
  - DRUG INEFFECTIVE [None]
